FAERS Safety Report 12404300 (Version 1)
Quarter: 2016Q2

REPORT INFORMATION
  Report Type: Spontaneous
  Country: US (occurrence: US)
  Receive Date: 20160525
  Receipt Date: 20160525
  Transmission Date: 20160815
  Serious: No
  Sender: FDA-Public Use
  Company Number: ALCN2016US003405

PATIENT
  Age: 73 Year
  Sex: Female

DRUGS (2)
  1. TIMOLOL. [Suspect]
     Active Substance: TIMOLOL
     Indication: GLAUCOMA
     Dosage: 1 GTT, BID
     Route: 047
     Dates: start: 201602, end: 20160511
  2. TIMOLOL. [Suspect]
     Active Substance: TIMOLOL
     Dosage: 1 GTT, QD
     Dates: start: 20160511

REACTIONS (5)
  - Oropharyngeal blistering [Not Recovered/Not Resolved]
  - Intentional product use issue [Not Recovered/Not Resolved]
  - Eye irritation [Not Recovered/Not Resolved]
  - Gingival blister [Not Recovered/Not Resolved]
  - Product taste abnormal [Not Recovered/Not Resolved]

NARRATIVE: CASE EVENT DATE: 201602
